FAERS Safety Report 10444871 (Version 2)
Quarter: 2014Q4

REPORT INFORMATION
  Report Type: Spontaneous
  Country: US (occurrence: US)
  Receive Date: 20140910
  Receipt Date: 20141006
  Transmission Date: 20150528
  Serious: No
  Sender: FDA-Public Use
  Company Number: US-009507513-1409USA002848

PATIENT
  Age: 64 Year
  Sex: Female
  Weight: 70.3 kg

DRUGS (7)
  1. TUDORZA PRESSAIR [Concomitant]
     Active Substance: ACLIDINIUM BROMIDE
     Indication: CHRONIC OBSTRUCTIVE PULMONARY DISEASE
     Dosage: UNK, UNKNOWN
  2. RANITIDINE [Concomitant]
     Active Substance: RANITIDINE\RANITIDINE HYDROCHLORIDE
     Indication: BARRETT^S OESOPHAGUS
     Dosage: UNK, UNKNOWN
  3. HYDROCHLOROTHIAZIDE (+) TRIAMTERENE [Concomitant]
     Indication: FLUID RETENTION
     Dosage: UNK, UNKNOWN
  4. SYNTHROID [Concomitant]
     Active Substance: LEVOTHYROXINE SODIUM
     Indication: HYPOTHYROIDISM
     Dosage: UNK, UNKNOWN
  5. OMEPRAZOLE. [Concomitant]
     Active Substance: OMEPRAZOLE
     Indication: BARRETT^S OESOPHAGUS
     Dosage: UNK, UNKNOWN
  6. MIRALAX [Suspect]
     Active Substance: POLYETHYLENE GLYCOL 3350
     Indication: COLONOSCOPY
     Dosage: 17 G, QD
     Route: 048
     Dates: start: 20140826, end: 20140902
  7. SIMVASTATIN. [Concomitant]
     Active Substance: SIMVASTATIN
     Indication: BLOOD CHOLESTEROL INCREASED
     Dosage: UNK, UNKNOWN

REACTIONS (3)
  - Constipation [Recovering/Resolving]
  - Drug prescribing error [Unknown]
  - Drug ineffective [Unknown]

NARRATIVE: CASE EVENT DATE: 2014
